FAERS Safety Report 9478206 (Version 5)
Quarter: 2013Q4

REPORT INFORMATION
  Report Type: Spontaneous
  Country: FR (occurrence: None)
  Receive Date: 20130815
  Receipt Date: 20131119
  Transmission Date: 20140711
  Serious: Yes (Hospitalization)
  Sender: FDA-Public Use
  Company Number: 2013037374

PATIENT
  Age: 57 Year
  Sex: Female

DRUGS (2)
  1. PRIVIGEN [Suspect]
     Indication: MULTIFOCAL MOTOR NEUROPATHY
     Dosage: 40 G QD, DOSE:  120 G ON 3 DAYS, 7TH COURSE, INTRAVENOUS (NOT OTHERWISE SPECIFIED)
     Route: 042
     Dates: start: 20130506, end: 20130508
  2. ESTREVA [Suspect]
     Dosage: DAILY DOSES:  START DATE 2001, STOP DATE 2013; ORAL; DURATION: 2 YEARS
     Route: 048

REACTIONS (3)
  - Deep vein thrombosis [None]
  - Pain in extremity [None]
  - Off label use [None]
